FAERS Safety Report 5649486-5 (Version None)
Quarter: 2008Q1

REPORT INFORMATION
  Report Type: 
  Country: None (occurrence: None)
  Receive Date: 20080131
  Receipt Date: 20071017
  Transmission Date: 20080703
  Serious: No
  Sender: FDA-Public Use
  Company Number: US200709000365

PATIENT
  Age: 65 Year
  Sex: Female
  Weight: 77.6 kg

DRUGS (6)
  1. BYETTA [Suspect]
     Indication: TYPE 2 DIABETES MELLITUS
     Dosage: 5 UG, 2/D, SUBCUTANEOUS
     Route: 058
     Dates: start: 20070711
  2. EXENATIDE 5MCG PEN, DISPOSABLE DEVICE [Concomitant]
  3. EXENATIDE UNK STRENGTH PEN, DISPOSABLE PEN (EXENATIDE PEN [Concomitant]
  4. INSULIN (INSULIN) [Concomitant]
  5. METFORMIN HCL [Concomitant]
  6. AMARYL [Concomitant]

REACTIONS (6)
  - DECREASED APPETITE [None]
  - FATIGUE [None]
  - NAUSEA [None]
  - NERVOUSNESS [None]
  - VOMITING [None]
  - WEIGHT DECREASED [None]
